FAERS Safety Report 15454442 (Version 1)
Quarter: 2018Q3

REPORT INFORMATION
  Report Type: Spontaneous
  Country: US (occurrence: US)
  Receive Date: 20180928
  Receipt Date: 20180928
  Transmission Date: 20181010
  Serious: Yes (Hospitalization)
  Sender: FDA-Public Use
  Company Number: None

PATIENT
  Sex: Female

DRUGS (9)
  1. MULTI?VIT [Concomitant]
     Active Substance: VITAMINS
  2. VENLAFAXINE [Concomitant]
     Active Substance: VENLAFAXINE HYDROCHLORIDE
  3. MESALAMINE. [Concomitant]
     Active Substance: MESALAMINE
  4. BLACK COHOSH CAP [Concomitant]
  5. ST JOHNS WRT CAP [Concomitant]
  6. FAMOTIDINE. [Concomitant]
     Active Substance: FAMOTIDINE
  7. HUMIRA [Suspect]
     Active Substance: ADALIMUMAB
     Indication: COLITIS
     Dosage: ?          OTHER FREQUENCY:STARTER DOSE PEN;?
     Route: 058
     Dates: start: 20180828
  8. VITAMINS + TAB MINERALS [Concomitant]
  9. EFFEXOR [Concomitant]
     Active Substance: VENLAFAXINE HYDROCHLORIDE

REACTIONS (2)
  - Condition aggravated [None]
  - Drug dose omission [None]
